FAERS Safety Report 9903336 (Version 3)
Quarter: 2015Q3

REPORT INFORMATION
  Report Type: Spontaneous
  Country: US (occurrence: US)
  Receive Date: 20140217
  Receipt Date: 20150810
  Transmission Date: 20151125
  Serious: No
  Sender: FDA-Public Use
  Company Number: US-GILEAD-2011-0045515

PATIENT
  Age: 57 Year
  Sex: Female

DRUGS (1)
  1. LETAIRIS [Suspect]
     Active Substance: AMBRISENTAN
     Indication: PRODUCT USED FOR UNKNOWN INDICATION
     Dosage: 10 MG, UNK
     Route: 048
     Dates: start: 20111008, end: 20111016

REACTIONS (15)
  - Muscular weakness [Recovered/Resolved]
  - Chest discomfort [Unknown]
  - Feeling hot [Unknown]
  - Dyspnoea [Recovered/Resolved]
  - Hypersensitivity [None]
  - Tongue disorder [Recovered/Resolved]
  - Fatigue [Recovered/Resolved]
  - Burning sensation [Recovered/Resolved]
  - Dizziness [Recovered/Resolved]
  - Pruritus [Recovered/Resolved]
  - Nausea [Recovered/Resolved]
  - Chest discomfort [Recovered/Resolved]
  - Head discomfort [Recovered/Resolved]
  - Burning sensation [Unknown]
  - Feeling jittery [Recovered/Resolved]

NARRATIVE: CASE EVENT DATE: 20111008
